FAERS Safety Report 17282401 (Version 1)
Quarter: 2020Q1

REPORT INFORMATION
  Report Type: Spontaneous
  Country: US (occurrence: US)
  Receive Date: 20191230
  Receipt Date: 20191230
  Transmission Date: 20200409
  Serious: Yes (Hospitalization)
  Sender: FDA-Public Use
  Company Number: None

PATIENT
  Age: 26 Year
  Sex: Female
  Weight: 77.11 kg

DRUGS (1)
  1. VRAYLAR [Suspect]
     Active Substance: CARIPRAZINE
     Indication: BLOOD PROLACTIN INCREASED
     Dosage: ?          OTHER DOSE:1 PILL; 12 DAILY TABLETE TAKEN IN TOTAL?
     Route: 048
     Dates: start: 20191024, end: 20191104

REACTIONS (4)
  - Insomnia [None]
  - Agitation [None]
  - Paranoia [None]
  - Loss of employment [None]

NARRATIVE: CASE EVENT DATE: 20191104
